FAERS Safety Report 16010766 (Version 1)
Quarter: 2019Q1

REPORT INFORMATION
  Report Type: Spontaneous
  Country: US (occurrence: US)
  Receive Date: 20190227
  Receipt Date: 20190227
  Transmission Date: 20190418
  Serious: Yes (Hospitalization, Other)
  Sender: FDA-Public Use
  Company Number: US-GLAXOSMITHKLINE-US2019032463

PATIENT
  Sex: Female

DRUGS (1)
  1. CEFTIN [Suspect]
     Active Substance: CEFUROXIME AXETIL
     Indication: BRONCHITIS
     Dosage: UNK UNK, U
     Dates: start: 201902, end: 20190219

REACTIONS (7)
  - Therapeutic product cross-reactivity [Unknown]
  - Suffocation feeling [Unknown]
  - Peripheral swelling [Recovering/Resolving]
  - Troponin increased [Unknown]
  - Dyspnoea exertional [Unknown]
  - Dyspnoea [Unknown]
  - Nervousness [Unknown]

NARRATIVE: CASE EVENT DATE: 201902
